FAERS Safety Report 8019739-4 (Version None)
Quarter: 2012Q1

REPORT INFORMATION
  Report Type: 
  Country: None (occurrence: None)
  Receive Date: 20120103
  Receipt Date: 20111221
  Transmission Date: 20120608
  Serious: Yes (Other)
  Sender: FDA-Public Use
  Company Number: GB-GLAXOSMITHKLINE-B0770650A

PATIENT
  Age: 71 Year
  Sex: Male
  Weight: 72 kg

DRUGS (5)
  1. DUTASTERIDE/TAMSULOSIN HYDROCHLORIDE [Suspect]
     Indication: URINARY RETENTION
     Dosage: 1IUAX PER DAY
     Route: 048
     Dates: start: 20111029, end: 20111103
  2. VALSARTAN [Concomitant]
     Indication: HYPERTENSION
     Dosage: 1IUAX PER DAY
     Route: 048
     Dates: start: 20050101
  3. METFORMIN HCL [Concomitant]
     Indication: DIABETES MELLITUS
     Dosage: 3IUAX PER DAY
     Route: 048
     Dates: start: 20050101
  4. ATORVASTATIN [Concomitant]
     Indication: HYPERCHOLESTEROLAEMIA
     Dosage: 1IUAX PER DAY
     Route: 048
     Dates: start: 20050101
  5. LERCANIDIPINE [Concomitant]
     Indication: HYPERTENSION
     Dosage: 1IUAX PER DAY
     Route: 048
     Dates: start: 20050101

REACTIONS (2)
  - SKIN DISCOLOURATION [None]
  - SWELLING FACE [None]
